FAERS Safety Report 6160439-3 (Version None)
Quarter: 2009Q2

REPORT INFORMATION
  Report Type: 
  Country: None (occurrence: None)
  Receive Date: 20090415
  Receipt Date: 20090415
  Transmission Date: 20091009
  Serious: No
  Sender: FDA-Public Use
  Company Number: None

PATIENT
  Age: 63 Year
  Sex: Male
  Weight: 92 kg

DRUGS (1)
  1. WARFARIN SODIUM [Suspect]
     Dosage: 10 MG EVERY DAY PO
     Route: 048
     Dates: start: 20081112, end: 20090324

REACTIONS (2)
  - ANAEMIA [None]
  - INTERNATIONAL NORMALISED RATIO ABNORMAL [None]
